FAERS Safety Report 4753603-9 (Version None)
Quarter: 2005Q3

REPORT INFORMATION
  Report Type: 
  Country: None (occurrence: None)
  Receive Date: 20050826
  Receipt Date: 20040913
  Transmission Date: 20060218
  Serious: No
  Sender: FDA-Public Use
  Company Number: US-GLAXOSMITHKLINE-A0525419A

PATIENT
  Age: 57 Year
  Sex: Male

DRUGS (2)
  1. BECONASE [Suspect]
     Route: 045
     Dates: start: 20040909, end: 20040911
  2. ZYRTEC [Concomitant]

REACTIONS (1)
  - ANOSMIA [None]
